FAERS Safety Report 15230875 (Version 1)
Quarter: 2018Q3

REPORT INFORMATION
  Report Type: Report from Study
  Country: DE (occurrence: DE)
  Receive Date: 20180802
  Receipt Date: 20180802
  Transmission Date: 20181010
  Serious: Yes (Death)
  Sender: FDA-Public Use
  Company Number: DE-ACTELION-A-CH2018-176072

PATIENT
  Age: 72 Year
  Sex: Female

DRUGS (1)
  1. UPTRAVI [Suspect]
     Active Substance: SELEXIPAG
     Indication: PULMONARY ARTERIAL HYPERTENSION
     Dosage: 200 ?G, BID
     Route: 048
     Dates: start: 20180702, end: 20180721

REACTIONS (1)
  - Death [Fatal]

NARRATIVE: CASE EVENT DATE: 20180721
